FAERS Safety Report 19699741 (Version 1)
Quarter: 2021Q3

REPORT INFORMATION
  Report Type: Other
  Country: PL (occurrence: PL)
  Receive Date: 20210814
  Receipt Date: 20210814
  Transmission Date: 20211014
  Serious: Yes (Hospitalization)
  Sender: FDA-Public Use
  Company Number: PL-ROCHE-2888851

PATIENT

DRUGS (2)
  1. PREDNISONE. [Concomitant]
     Active Substance: PREDNISONE
     Dosage: 30 MG/DAY
  2. RITUXIMAB. [Suspect]
     Active Substance: RITUXIMAB
     Indication: CRYOGLOBULINAEMIA
     Dosage: 2 COURSES (2X 1000 MG)
     Route: 042

REACTIONS (4)
  - Urinary tract infection [Unknown]
  - Off label use [Unknown]
  - Pneumonia [Unknown]
  - Therapy partial responder [Unknown]
